FAERS Safety Report 13982490 (Version 4)
Quarter: 2017Q4

REPORT INFORMATION
  Report Type: Spontaneous
  Country: JP (occurrence: JP)
  Receive Date: 20170918
  Receipt Date: 20171106
  Transmission Date: 20180321
  Serious: Yes (Other)
  Sender: FDA-Public Use
  Company Number: PHJP2017JP027523

PATIENT
  Age: 67 Year
  Sex: Male

DRUGS (1)
  1. AZORGA COMBINATION OPHTHALMIC SUSPENSION [Suspect]
     Active Substance: BRINZOLAMIDE\TIMOLOL MALEATE
     Indication: GLAUCOMA
     Dosage: 1 GTT, BID
     Route: 047
     Dates: start: 20160621, end: 20170904

REACTIONS (2)
  - Punctate keratitis [Recovering/Resolving]
  - Eye injury [Recovering/Resolving]

NARRATIVE: CASE EVENT DATE: 20170825
